FAERS Safety Report 9202196 (Version 2)
Quarter: 2013Q2

REPORT INFORMATION
  Report Type: Spontaneous
  Country: JP (occurrence: None)
  Receive Date: 20130328
  Receipt Date: 20130429
  Transmission Date: 20140414
  Serious: Yes (Hospitalization)
  Sender: FDA-Public Use
  Company Number: TCI2013A01566

PATIENT
  Age: 75 Year
  Sex: Male

DRUGS (6)
  1. NESINA [Suspect]
     Indication: TYPE 2 DIABETES MELLITUS
     Route: 048
     Dates: start: 20120228, end: 20120515
  2. AMARYL (GLIMEPIRIDE) [Concomitant]
  3. METGLUCO (METFORMIN HYDROCHLORIDE) [Concomitant]
  4. GLUBES (MITIGLINIDE CALCIUM HYDRATE/VOGLIBOSE) (ORAL ANTIDIABETICS) [Concomitant]
  5. NORVASC (AMLODIPINE BESILATE) [Concomitant]
  6. DIOVAN (VALSARTAN) [Concomitant]

REACTIONS (1)
  - Pancreatitis acute [None]
